FAERS Safety Report 9908874 (Version 1)
Quarter: 2014Q1

REPORT INFORMATION
  Report Type: Not Available
  Country: FR (occurrence: FR)
  Receive Date: 20140219
  Receipt Date: 20140219
  Transmission Date: 20141002
  Serious: Yes (Disabling)
  Sender: FDA-Public Use
  Company Number: FR-ASTELLAS-2014EU001388

PATIENT
  Age: 44 Year
  Sex: Male

DRUGS (2)
  1. PROGRAF [Suspect]
     Indication: IMMUNOSUPPRESSION
     Dosage: UNK
     Route: 065
  2. CELLCEPT /01275102/ [Suspect]
     Indication: IMMUNOSUPPRESSION
     Dosage: UNK
     Route: 065

REACTIONS (1)
  - Optic neuropathy [Not Recovered/Not Resolved]
